FAERS Safety Report 5079068-8 (Version None)
Quarter: 2006Q3

REPORT INFORMATION
  Report Type: 
  Country: None (occurrence: None)
  Receive Date: 20060808
  Receipt Date: 20060801
  Transmission Date: 20061208
  Serious: Yes (Death, Life-Threatening, Hospitalization)
  Sender: FDA-Public Use
  Company Number: MEDI-0004726

PATIENT
  Age: 35 Year
  Sex: Female

DRUGS (19)
  1. ETHYOL (AMFIOSTINE) [Suspect]
     Indication: RADIOTHERAPY
     Dosage: SEE IMAGE
     Route: 042
     Dates: start: 20030717, end: 20030728
  2. ETHYOL (AMFIOSTINE) [Suspect]
     Indication: RADIOTHERAPY
     Dosage: SEE IMAGE
     Route: 042
     Dates: start: 20030807, end: 20030807
  3. RADIATION THERAPY [Concomitant]
  4. LEUCOVORIN CALCIUM [Concomitant]
  5. DECADRON [Concomitant]
  6. PROLOSEC (OMEPRAZOLE) [Concomitant]
  7. PRILOSEC [Concomitant]
  8. MAALOX (MAGNESIUM HYDROXIDE, ALUMINIUM HYDROXIDE0 [Concomitant]
  9. COMPAZINE [Concomitant]
  10. MEGACE [Concomitant]
  11. MILK OF MAGNESIA TAB [Concomitant]
  12. LORAZEPAM [Concomitant]
  13. MS CONTIN [Concomitant]
  14. SENNA (SENNA ALEXANDRINA) [Concomitant]
  15. MORPHINE SULFATE [Concomitant]
  16. TORECAN [Concomitant]
  17. IBUPROFEN [Concomitant]
  18. ACETAMINOPHEN [Concomitant]
  19. TRAMADOL HCL [Concomitant]

REACTIONS (25)
  - ACUTE MYOCARDIAL INFARCTION [None]
  - ALANINE AMINOTRANSFERASE INCREASED [None]
  - ASPARTATE AMINOTRANSFERASE INCREASED [None]
  - BILE DUCT CANCER [None]
  - BLOOD ALKALINE PHOSPHATASE INCREASED [None]
  - CHILLS [None]
  - DERMATITIS CONTACT [None]
  - DISEASE PROGRESSION [None]
  - ELECTROCARDIOGRAM T WAVE INVERSION [None]
  - FEELING HOT [None]
  - HEADACHE [None]
  - HYPERHIDROSIS [None]
  - HYPERTENSION [None]
  - HYPOTENSION [None]
  - HYPOXIA [None]
  - INFECTION [None]
  - MALIGNANT NEOPLASM PROGRESSION [None]
  - PLATELET COUNT DECREASED [None]
  - PULMONARY EMBOLISM [None]
  - PYREXIA [None]
  - RASH ERYTHEMATOUS [None]
  - REFUSAL OF TREATMENT BY PATIENT [None]
  - TACHYCARDIA [None]
  - TACHYPNOEA [None]
  - WHITE BLOOD CELL COUNT DECREASED [None]
